FAERS Safety Report 7660232-6 (Version None)
Quarter: 2011Q3

REPORT INFORMATION
  Report Type: 
  Country: None (occurrence: None)
  Receive Date: 20110805
  Receipt Date: 20110727
  Transmission Date: 20111222
  Serious: Yes (Other)
  Sender: FDA-Public Use
  Company Number: PHHY2011CA63594

PATIENT
  Sex: Female

DRUGS (2)
  1. HYDROCHLOROTHIAZID [Concomitant]
     Dosage: 25 MG
  2. ZOLEDRONOC ACID [Suspect]
     Route: 042
     Dates: start: 20110621

REACTIONS (5)
  - LOSS OF CONSCIOUSNESS [None]
  - DIARRHOEA [None]
  - DEHYDRATION [None]
  - BLOOD POTASSIUM DECREASED [None]
  - SYNCOPE [None]
